FAERS Safety Report 7237291-8 (Version None)
Quarter: 2011Q1

REPORT INFORMATION
  Report Type: 
  Country: None (occurrence: None)
  Receive Date: 20110121
  Receipt Date: 20110120
  Transmission Date: 20110831
  Serious: Yes (Death)
  Sender: FDA-Public Use
  Company Number: US-ROXANE LABORATORIES, INC.-2011-RO-00087RO

PATIENT
  Age: 25 Year
  Sex: Male

DRUGS (3)
  1. COCAINE [Suspect]
  2. ETHANOL [Suspect]
  3. BUPRENORPHINE HCL [Suspect]

REACTIONS (1)
  - ACCIDENTAL DEATH [None]
